FAERS Safety Report 7439991-3 (Version None)
Quarter: 2011Q2

REPORT INFORMATION
  Report Type: 
  Country: None (occurrence: None)
  Receive Date: 20110427
  Receipt Date: 20110418
  Transmission Date: 20111010
  Serious: Yes (Other)
  Sender: FDA-Public Use
  Company Number: US-ASTRAZENECA-2011SE22042

PATIENT
  Age: 84 Year
  Sex: Female

DRUGS (4)
  1. LODOSYN [Concomitant]
     Indication: PARKINSON'S DISEASE
  2. SEROQUEL [Suspect]
     Indication: HALLUCINATION, AUDITORY
     Route: 048
     Dates: start: 20110101
  3. PEXEVA [Concomitant]
     Indication: DEPRESSION
  4. MITARIN [Concomitant]
     Indication: BLOOD PRESSURE

REACTIONS (14)
  - ABDOMINAL PAIN [None]
  - SWEAT DISCOLOURATION [None]
  - DYSPHONIA [None]
  - MALIGNANT MELANOMA [None]
  - NAUSEA [None]
  - SEDATION [None]
  - HYPOTENSION [None]
  - HYPERSOMNIA [None]
  - MEMORY IMPAIRMENT [None]
  - GAIT DISTURBANCE [None]
  - TONGUE SPASM [None]
  - DIZZINESS [None]
  - HALLUCINATION, AUDITORY [None]
  - OFF LABEL USE [None]
